FAERS Safety Report 7011822-5 (Version None)
Quarter: 2010Q3

REPORT INFORMATION
  Report Type: 
  Country: None (occurrence: None)
  Receive Date: 20100923
  Receipt Date: 20090824
  Transmission Date: 20110219
  Serious: Yes (Other)
  Sender: FDA-Public Use
  Company Number: US-WYE-H10696609

PATIENT
  Sex: Female
  Weight: 131.66 kg

DRUGS (2)
  1. PREMARIN [Suspect]
     Dosage: UNKNOWN
     Route: 065
  2. EVISTA [Suspect]
     Dosage: UNKNOWN
     Route: 065

REACTIONS (1)
  - THROMBOSIS [None]
